FAERS Safety Report 5192204-8 (Version None)
Quarter: 2006Q4

REPORT INFORMATION
  Report Type: 
  Country: None (occurrence: None)
  Receive Date: 20061221
  Receipt Date: 20061221
  Transmission Date: 20070319
  Serious: Yes (Other)
  Sender: FDA-Public Use
  Company Number: None

PATIENT
  Age: 51 Year
  Sex: Female
  Weight: 72.5755 kg

DRUGS (1)
  1. BONIVA [Suspect]
     Indication: OSTEOPENIA
     Dosage: ONE PILL ONCE PER MONTH PO
     Route: 048
     Dates: start: 20061129, end: 20061129

REACTIONS (10)
  - ARTHRALGIA [None]
  - BACK PAIN [None]
  - EAR PAIN [None]
  - FATIGUE [None]
  - INSOMNIA [None]
  - MASTICATION DISORDER [None]
  - MYALGIA [None]
  - PAIN [None]
  - PAIN IN EXTREMITY [None]
  - PAIN IN JAW [None]
